FAERS Safety Report 7344841-X (Version None)
Quarter: 2011Q1

REPORT INFORMATION
  Report Type: 
  Country: None (occurrence: None)
  Receive Date: 20110310
  Receipt Date: 20110307
  Transmission Date: 20110831
  Serious: Yes (Other)
  Sender: FDA-Public Use
  Company Number: US-PFIZER INC-2011049889

PATIENT
  Sex: Male
  Weight: 68.027 kg

DRUGS (3)
  1. EFFEXOR [Concomitant]
     Indication: AFFECTIVE DISORDER
     Dosage: UNK
  2. CHANTIX [Suspect]
     Indication: SMOKING CESSATION THERAPY
     Dosage: 0.5 MG, UNK
     Route: 048
     Dates: start: 20110207, end: 20110218
  3. PAXIL [Concomitant]
     Indication: AFFECTIVE DISORDER
     Dosage: 20 MG, UNK

REACTIONS (7)
  - ABNORMAL BEHAVIOUR [None]
  - MOTOR DYSFUNCTION [None]
  - ANXIETY [None]
  - CONFUSIONAL STATE [None]
  - THINKING ABNORMAL [None]
  - INSOMNIA [None]
  - ABNORMAL DREAMS [None]
